FAERS Safety Report 23366600 (Version 1)
Quarter: 2024Q1

REPORT INFORMATION
  Report Type: Spontaneous
  Country: US (occurrence: None)
  Receive Date: 20240104
  Receipt Date: 20240104
  Transmission Date: 20240410
  Serious: Yes (Death)
  Sender: FDA-Public Use
  Company Number: None

PATIENT
  Age: 37 Year
  Sex: Male

DRUGS (1)
  1. TIANEPTINE [Suspect]
     Active Substance: TIANEPTINE
     Dates: start: 20231105

REACTIONS (5)
  - Somnolence [None]
  - Multiple organ dysfunction syndrome [None]
  - Myocardial infarction [None]
  - Prescription drug used without a prescription [None]
  - Drug diversion [None]

NARRATIVE: CASE EVENT DATE: 20231105
